FAERS Safety Report 22529840 (Version 1)
Quarter: 2023Q2

REPORT INFORMATION
  Report Type: Spontaneous
  Country: US (occurrence: US)
  Receive Date: 20230607
  Receipt Date: 20230607
  Transmission Date: 20230722
  Serious: No
  Sender: FDA-Public Use
  Company Number: US-BAYER-2023A068590

PATIENT
  Sex: Female

DRUGS (2)
  1. PROBIOTICS NOS [Suspect]
     Active Substance: PROBIOTICS NOS
     Indication: Irritable bowel syndrome
     Dosage: UNK UNK, QD
     Route: 048
  2. MIRALAX [Suspect]
     Active Substance: POLYETHYLENE GLYCOL 3350
     Indication: Irritable bowel syndrome
     Route: 048

REACTIONS (3)
  - Drug effective for unapproved indication [Unknown]
  - Drug ineffective for unapproved indication [Unknown]
  - Irritable bowel syndrome [Unknown]
